FAERS Safety Report 23538136 (Version 1)
Quarter: 2024Q1

REPORT INFORMATION
  Report Type: Spontaneous
  Country: ES (occurrence: ES)
  Receive Date: 20240219
  Receipt Date: 20240219
  Transmission Date: 20240410
  Serious: Yes (Other)
  Sender: FDA-Public Use
  Company Number: None

PATIENT
  Age: 66 Year
  Sex: Female

DRUGS (3)
  1. ATORVASTATIN [Suspect]
     Active Substance: ATORVASTATIN
     Indication: Cerebrovascular accident
     Dosage: ATORVASTATINA (7400A)
     Route: 048
     Dates: start: 20220214, end: 20220622
  2. ACETYLSALICALIC ACID [Concomitant]
     Indication: Cerebrovascular accident
     Dosage: ACETILSALICILICO ACIDO (176A)
     Route: 048
     Dates: start: 20220214
  3. OMEPRAZOLE [Concomitant]
     Active Substance: OMEPRAZOLE
     Indication: Prophylaxis against gastrointestinal ulcer
     Dosage: OMEPRAZOL (2141A)
     Route: 048
     Dates: start: 20220510

REACTIONS (1)
  - Mixed liver injury [Recovered/Resolved]

NARRATIVE: CASE EVENT DATE: 20220608
